FAERS Safety Report 25974873 (Version 1)
Quarter: 2025Q4

REPORT INFORMATION
  Report Type: Report from Study
  Country: US (occurrence: US)
  Receive Date: 20251029
  Receipt Date: 20251029
  Transmission Date: 20260117
  Serious: Yes (Other)
  Sender: AMGEN
  Company Number: US-AMGEN-USASL2025145569

PATIENT
  Sex: Female

DRUGS (1)
  1. TEPEZZA [Suspect]
     Active Substance: TEPROTUMUMAB-TRBW
     Indication: Toxic goitre
     Dosage: 10 MILLIGRAM/KILOGRAM
     Route: 040
     Dates: start: 20250701, end: 20250701

REACTIONS (5)
  - Deafness unilateral [Unknown]
  - Tinnitus [Not Recovered/Not Resolved]
  - Eye pain [Unknown]
  - Ocular discomfort [Unknown]
  - Ear discomfort [Unknown]
